FAERS Safety Report 14112276 (Version 4)
Quarter: 2018Q3

REPORT INFORMATION
  Report Type: Spontaneous
  Country: US (occurrence: US)
  Receive Date: 20171020
  Receipt Date: 20180723
  Transmission Date: 20181010
  Serious: Yes (Death, Other)
  Sender: FDA-Public Use
  Company Number: US-009507513-1710USA008388

PATIENT
  Age: 70 Year
  Sex: Male

DRUGS (17)
  1. ACETAMINOPHEN. [Concomitant]
     Active Substance: ACETAMINOPHEN
     Dosage: 650 MG, 2 TAB, Q6H, PRN
     Route: 048
  2. ADVAIR HFA [Concomitant]
     Active Substance: FLUTICASONE PROPIONATE\SALMETEROL XINAFOATE
     Dosage: 1 PUFF, INHALATION, 2X/DAY
     Route: 055
  3. ALLOPURINOL. [Concomitant]
     Active Substance: ALLOPURINOL
     Dosage: 1 TAB, DAILY, 3 REFILLS
     Route: 048
  4. PROTONIX [Concomitant]
     Active Substance: PANTOPRAZOLE SODIUM
     Dosage: 3 REFILLS
     Route: 048
  5. ZEPATIER [Suspect]
     Active Substance: ELBASVIR\GRAZOPREVIR
     Indication: HEPATITIS C
     Dosage: 1 TABLET, DAILY
     Route: 048
     Dates: start: 20170415
  6. FERROUS SULFATE. [Concomitant]
     Active Substance: FERROUS SULFATE
     Dosage: 1 TAB, DAILY
     Route: 048
  7. ALBUTEROL (+) IPRATROPIUM BROMIDE [Concomitant]
     Dosage: 3 ML, NEB, 4X/DAY, PRN
     Route: 055
  8. CALCIUM (UNSPECIFIED) (+) VITAMIN D (UNSPECIFIED) [Concomitant]
     Active Substance: CALCIUM CARBONATE\VITAMIN D
     Dosage: 600 MG?200 UNITS, 2 TAB, NIGHTLY
     Route: 048
  9. METOPROLOL TARTRATE. [Concomitant]
     Active Substance: METOPROLOL TARTRATE
     Dosage: 1 DF, BID
     Route: 048
  10. METOPROLOL TARTRATE. [Concomitant]
     Active Substance: METOPROLOL TARTRATE
     Dosage: WITH DINNER, 3 REFILLS
     Route: 048
  11. PREDNISONE. [Concomitant]
     Active Substance: PREDNISONE
     Dosage: 1 TAB, 3 REFILLS
     Route: 048
  12. TACROLIMUS. [Concomitant]
     Active Substance: TACROLIMUS
     Dosage: 1 CAP, 3 REFILLS
     Route: 048
  13. TACROLIMUS. [Concomitant]
     Active Substance: TACROLIMUS
     Dosage: 1 CAP, DAILY, 3 REFILLS
     Route: 048
  14. ACETAMINOPHEN (+) OXYCODONE HYDROCHLORIDE [Concomitant]
     Active Substance: ACETAMINOPHEN\OXYCODONE HYDROCHLORIDE
     Dosage: 1 DF, Q6H, PRN
     Route: 048
  15. MYFORTIC [Concomitant]
     Active Substance: MYCOPHENOLATE SODIUM
     Dosage: 3 REFILLS
     Route: 048
  16. PROAIR HFA [Concomitant]
     Active Substance: ALBUTEROL SULFATE
     Dosage: 2 PUFF, INHALATION, Q4H PRN
     Route: 055
  17. SPIRIVA [Concomitant]
     Active Substance: TIOTROPIUM BROMIDE MONOHYDRATE
     Dosage: 1 EA, INHALATION
     Route: 055

REACTIONS (5)
  - Chronic kidney disease [Fatal]
  - No adverse event [Unknown]
  - Hypertension [Fatal]
  - Cardiac arrest [Fatal]
  - Complications of transplanted kidney [Fatal]

NARRATIVE: CASE EVENT DATE: 20170705
